FAERS Safety Report 14710932 (Version 1)
Quarter: 2018Q2

REPORT INFORMATION
  Report Type: Spontaneous
  Country: US (occurrence: US)
  Receive Date: 20180403
  Receipt Date: 20180403
  Transmission Date: 20180711
  Serious: No
  Sender: FDA-Public Use
  Company Number: US-BAUSCH-BL-2017-015870

PATIENT
  Age: 61 Year
  Sex: Female
  Weight: 40.86 kg

DRUGS (3)
  1. VITAMIN C [Concomitant]
     Active Substance: ASCORBIC ACID
     Indication: THERAPEUTIC SKIN CARE TOPICAL
     Route: 061
     Dates: start: 1997
  2. RENOVA [Suspect]
     Active Substance: TRETINOIN
     Indication: PROPHYLAXIS
     Route: 061
     Dates: start: 2002
  3. RENOVA [Suspect]
     Active Substance: TRETINOIN
     Dosage: 3 TIMES
     Route: 061
     Dates: start: 201704

REACTIONS (1)
  - Drug ineffective [Unknown]
